FAERS Safety Report 5760301-1 (Version None)
Quarter: 2008Q2

REPORT INFORMATION
  Report Type: 
  Country: None (occurrence: None)
  Receive Date: 20080602
  Receipt Date: 20080521
  Transmission Date: 20081010
  Serious: Yes (Death, Hospitalization, Other)
  Sender: FDA-Public Use
  Company Number: GXKR2008CA04692

PATIENT
  Age: 3 Year
  Sex: Male
  Weight: 16.7 kg

DRUGS (7)
  1. DEXAMETHASONE [Suspect]
     Indication: PROPHYLAXIS
     Dosage: 0.25 MG/KG, INTRAVENOUS
     Route: 042
  2. OMEPRAZOLE [Concomitant]
  3. ACETAMINOPHEN [Concomitant]
  4. ONDANSETRON HCL [Concomitant]
  5. MORPHINE [Concomitant]
  6. PROPOFOL [Concomitant]
  7. SEVOFLURANE [Concomitant]

REACTIONS (11)
  - APNOEA [None]
  - CARDIO-RESPIRATORY ARREST [None]
  - CYANOSIS [None]
  - HYPERKALAEMIA [None]
  - HYPERLACTACIDAEMIA [None]
  - HYPERPHOSPHATAEMIA [None]
  - HYPERURICAEMIA [None]
  - HYPOXIC ENCEPHALOPATHY [None]
  - RESPIRATORY DEPRESSION [None]
  - TUMOUR LYSIS SYNDROME [None]
  - UNRESPONSIVE TO STIMULI [None]
